FAERS Safety Report 4677698-6 (Version None)
Quarter: 2005Q2

REPORT INFORMATION
  Report Type: 
  Country: None (occurrence: None)
  Receive Date: 20050527
  Receipt Date: 20050512
  Transmission Date: 20051028
  Serious: Yes (Hospitalization)
  Sender: FDA-Public Use
  Company Number: ENTC2005-0131

PATIENT
  Age: 72 Year
  Sex: Male

DRUGS (9)
  1. STAVELO (LEVODOPA, CARBIDOPA, ENTACAPONE) [Suspect]
     Indication: PARKINSON'S DISEASE
     Dosage: 100/25/200 MG X 2
     Route: 048
     Dates: start: 20041001
  2. REQUIP [Concomitant]
  3. MODOPAR [Concomitant]
  4. LODALES [Concomitant]
  5. APROVEL [Concomitant]
  6. LASILIX [Concomitant]
  7. NITROGLYCERIN [Concomitant]
  8. KARDEGIC [Concomitant]
  9. SERETIDE [Concomitant]

REACTIONS (5)
  - ASCITES [None]
  - CONGESTIVE CARDIOMYOPATHY [None]
  - DYSKINESIA [None]
  - PERICARDIAL EFFUSION [None]
  - POLYSEROSITIS [None]
